FAERS Safety Report 14785192 (Version 1)
Quarter: 2018Q2

REPORT INFORMATION
  Report Type: Spontaneous
  Country: CA (occurrence: CA)
  Receive Date: 20180421
  Receipt Date: 20180421
  Transmission Date: 20180711
  Serious: Yes (Other)
  Sender: FDA-Public Use
  Company Number: CA-AMGEN-CANSP2018053276

PATIENT
  Age: 56 Year
  Sex: Male

DRUGS (2)
  1. ENBREL [Suspect]
     Active Substance: ETANERCEPT
     Indication: RHEUMATOID ARTHRITIS
     Dosage: UNK
     Route: 065
     Dates: start: 201501, end: 201507
  2. ORENCIA [Suspect]
     Active Substance: ABATACEPT
     Indication: PRODUCT USED FOR UNKNOWN INDICATION
     Dosage: 125 MG, QWK
     Route: 065
     Dates: start: 201508, end: 20180408

REACTIONS (6)
  - Impaired work ability [Unknown]
  - Rash [Unknown]
  - Musculoskeletal discomfort [Recovered/Resolved]
  - Pain in extremity [Unknown]
  - Arthralgia [Unknown]
  - Drug effect incomplete [Unknown]

NARRATIVE: CASE EVENT DATE: 2015
